FAERS Safety Report 25859419 (Version 1)
Quarter: 2025Q3

REPORT INFORMATION
  Report Type: Spontaneous
  Country: US (occurrence: US)
  Receive Date: 20250929
  Receipt Date: 20250929
  Transmission Date: 20251020
  Serious: Yes (Hospitalization)
  Sender: ABBVIE
  Company Number: US-ABBVIE-6480985

PATIENT

DRUGS (1)
  1. LUPRON [Suspect]
     Active Substance: LEUPROLIDE ACETATE
     Indication: Product used for unknown indication
     Route: 065

REACTIONS (5)
  - Seizure [Unknown]
  - Chest pain [Unknown]
  - Pain [Unknown]
  - Migraine [Unknown]
  - Tremor [Unknown]

NARRATIVE: CASE EVENT DATE: 20250101
